FAERS Safety Report 15008277 (Version 1)
Quarter: 2018Q2

REPORT INFORMATION
  Report Type: Spontaneous
  Country: US (occurrence: US)
  Receive Date: 20180613
  Receipt Date: 20180613
  Transmission Date: 20180711
  Serious: Yes (Hospitalization, Other)
  Sender: FDA-Public Use
  Company Number: US-009507513-1806USA003138

PATIENT
  Age: 60 Year
  Sex: Female

DRUGS (4)
  1. CARBOPLATIN. [Suspect]
     Active Substance: CARBOPLATIN
     Dosage: 620 MG EVERY 3 WEEKS
     Route: 042
     Dates: start: 20180302
  2. KEYTRUDA [Suspect]
     Active Substance: PEMBROLIZUMAB
     Dosage: 200 MG EVERY 3 WEEKS
     Route: 042
     Dates: start: 20180606
  3. INLYTA [Suspect]
     Active Substance: AXITINIB
     Dosage: 985 MG EVERY 3 WEEKS
     Route: 042
     Dates: start: 20180302
  4. KEYTRUDA [Suspect]
     Active Substance: PEMBROLIZUMAB
     Indication: LUNG ADENOCARCINOMA
     Dosage: 200 MG EVERY 3 WEEKS
     Route: 042
     Dates: start: 20180302, end: 201805

REACTIONS (2)
  - Haemoglobin decreased [Unknown]
  - Adverse event [Unknown]

NARRATIVE: CASE EVENT DATE: 201805
